FAERS Safety Report 6909617-3 (Version None)
Quarter: 2010Q3

REPORT INFORMATION
  Report Type: 
  Country: None (occurrence: None)
  Receive Date: 20100805
  Receipt Date: 20100517
  Transmission Date: 20110219
  Serious: No
  Sender: FDA-Public Use
  Company Number: US-TYCO HEALTHCARE/MALLINCKRODT-T201001260

PATIENT

DRUGS (18)
  1. FENTANYL CITRATE [Suspect]
     Indication: PAIN
     Dosage: 3 - 6 PER DAY
     Route: 048
     Dates: start: 20100101
  2. HORMONES NOS [Concomitant]
     Indication: HORMONE REPLACEMENT THERAPY
     Dosage: EVERY THREE DAYS
     Route: 062
  3. SEROQUEL [Concomitant]
     Indication: SLEEP DISORDER
     Dosage: 50 MG QHS
  4. BENADRYL [Concomitant]
     Indication: FEELING OF RELAXATION
     Dosage: 25 MG, TID
  5. LEVOTHYROXINE [Concomitant]
     Indication: HYPOTHYROIDISM
     Dosage: .025 QD
  6. SIMVASTATIN [Concomitant]
     Indication: BLOOD CHOLESTEROL INCREASED
     Dosage: 40 MG, QD
  7. PIROXICAM [Concomitant]
     Indication: ANTIINFLAMMATORY THERAPY
     Dosage: 20 MG, QD
  8. PANTOPRAZOLE [Concomitant]
     Indication: GASTROOESOPHAGEAL REFLUX DISEASE
     Dosage: 40 MG, QD
  9. DANTROLENE [Concomitant]
     Indication: MUSCLE RELAXANT THERAPY
     Dosage: 25 MG, 2 IN AM, 4 IN PM
  10. ASPIRIN [Concomitant]
     Indication: PROPHYLAXIS
     Dosage: 81 MG, QD
  11. FISH OIL [Concomitant]
     Indication: SUPPLEMENTATION THERAPY
     Dosage: 2 TABS QD
  12. MULTI-VITAMINS [Concomitant]
     Indication: SUPPLEMENTATION THERAPY
     Dosage: 1 QD
  13. VITAMIN A [Concomitant]
     Indication: SUPPLEMENTATION THERAPY
     Dosage: 2000 IU, QD
  14. VESICARE [Concomitant]
     Indication: HYPERTONIC BLADDER
     Dosage: 5 MG, QD
  15. D-AMPHETAMINE [Concomitant]
     Indication: DRUG INTERACTION
     Dosage: 10 MG, QD
  16. FENTANYL [Concomitant]
     Indication: PAIN
     Dosage: 13444 UG/HR, QD
     Route: 037
  17. BUPIVACAINE HCL [Concomitant]
     Indication: PAIN
     Dosage: 16.297 MG, QD
     Route: 037
  18. CLONIDINE [Concomitant]
     Indication: PAIN
     Dosage: 42.17 MG, QD
     Route: 037

REACTIONS (1)
  - TOOTH LOSS [None]
